FAERS Safety Report 7048900-0 (Version None)
Quarter: 2010Q4

REPORT INFORMATION
  Report Type: 
  Country: None (occurrence: None)
  Receive Date: 20101018
  Receipt Date: 20101005
  Transmission Date: 20110411
  Serious: Yes (Hospitalization)
  Sender: FDA-Public Use
  Company Number: US-ELI_LILLY_AND_COMPANY-US200911007176

PATIENT
  Sex: Female

DRUGS (38)
  1. FORTEO [Suspect]
     Indication: OSTEOPOROSIS
     Dosage: 20 UG, DAILY (1/D)
  2. ANTIBIOTICS [Concomitant]
     Route: 042
     Dates: start: 20091101, end: 20091101
  3. ANTIBIOTICS [Concomitant]
     Route: 048
     Dates: start: 20091101
  4. VITAMIN D [Concomitant]
     Dosage: 1000 IU, DAILY (1/D)
  5. CALCIUM CITRATE [Concomitant]
     Dosage: UNK, 2/D
  6. SUDAFED 12 HOUR [Concomitant]
     Dosage: 30 MG, 2/D
  7. ATROVENT [Concomitant]
     Dosage: 2 D/F, 4/D
     Route: 045
  8. ASTELIN [Concomitant]
     Dosage: 2 D/F, 2/D
     Route: 045
  9. ALBUTEROL [Concomitant]
     Dosage: 2 D/F, 4/D
     Route: 055
  10. ALBUTEROL [Concomitant]
     Dosage: UNK, AS NEEDED
     Route: 055
  11. ALBUTEROL [Concomitant]
     Dosage: UNK, AS NEEDED
     Route: 050
  12. ATROVENT [Concomitant]
     Dosage: 2 D/F, 3/D
     Route: 055
  13. ATROVENT [Concomitant]
     Dosage: UNK, AS NEEDED
     Route: 055
  14. ATROVENT [Concomitant]
     Dosage: UNK, AS NEEDED
     Route: 050
  15. SYMBICORT [Concomitant]
     Dosage: 2 D/F, 2/D
  16. PULMICORT RESPULES [Concomitant]
     Dosage: UNK, AS NEEDED
     Route: 050
  17. BENICAR [Concomitant]
  18. ACIPHEX [Concomitant]
     Dosage: 20 MG, 2/D
  19. ASPIRIN [Concomitant]
     Dosage: 81 MG, UNK
  20. CETIRIZINE HCL [Concomitant]
     Dosage: 10 MG, UNK
  21. CLONAZEPAM [Concomitant]
     Dosage: 5 MG, 3/D
  22. CLONAZEPAM [Concomitant]
     Dosage: 10 MG, EACH EVENING
  23. QUINIDINE HCL [Concomitant]
     Dosage: UNK, 3/D
  24. CYMBALTA [Concomitant]
     Dosage: 60 MG, 2/D
  25. BENTYL [Concomitant]
  26. TRICOR [Concomitant]
     Dosage: 1 MG, DAILY (1/D)
  27. FERROUS SULFATE [Concomitant]
  28. GLUCOSAMINE [Concomitant]
  29. CHONDROITIN [Concomitant]
  30. GLYBURIDE [Concomitant]
     Dosage: UNK, 2/D
  31. GLYBURIDE [Concomitant]
     Dosage: UNK, EACH EVENING
  32. LIDODERM [Concomitant]
     Dosage: 5 %, UNK
     Route: 062
  33. MAGNESIUM SULFATE [Concomitant]
     Dosage: 250 MG, DAILY (1/D)
  34. METFORMIN [Concomitant]
     Dosage: 1000 MG, 2/D
  35. FISH OIL [Concomitant]
  36. OXYCODONE HCL [Concomitant]
     Dosage: 30 MG, EVERY 8 HRS
  37. SYMBICORT [Concomitant]
     Route: 055
  38. AZMACORT [Concomitant]

REACTIONS (21)
  - ASTHMA [None]
  - BODY HEIGHT DECREASED [None]
  - BRONCHIAL HYPERREACTIVITY [None]
  - CONFUSIONAL STATE [None]
  - COUGH [None]
  - DISTURBANCE IN ATTENTION [None]
  - DYSPNOEA [None]
  - EXCORIATION [None]
  - FALL [None]
  - HOSPITALISATION [None]
  - INTENTIONAL DRUG MISUSE [None]
  - MEDICATION ERROR [None]
  - MEMORY IMPAIRMENT [None]
  - MIGRAINE [None]
  - PERIORBITAL HAEMATOMA [None]
  - RIB FRACTURE [None]
  - SEPSIS [None]
  - SINUSITIS [None]
  - STRESS FRACTURE [None]
  - UPPER RESPIRATORY TRACT INFECTION [None]
  - URINARY TRACT INFECTION [None]
